FAERS Safety Report 5889162-7 (Version None)
Quarter: 2008Q3

REPORT INFORMATION
  Report Type: 
  Country: None (occurrence: None)
  Receive Date: 20080919
  Receipt Date: 20080910
  Transmission Date: 20090109
  Serious: Yes (Hospitalization)
  Sender: FDA-Public Use
  Company Number: DE-ASTRAZENECA-2008PK02026

PATIENT
  Age: 30677 Day
  Sex: Female

DRUGS (2)
  1. SYMBICORT [Suspect]
     Indication: ASTHMA
     Dosage: 160/4.5 UG 2 INHALATIONS TWICE DAILY
     Route: 055
     Dates: start: 20080408
  2. CAPTOCOMP [Suspect]
     Route: 048

REACTIONS (2)
  - HYPOKALAEMIA [None]
  - SYNCOPE [None]
